FAERS Safety Report 8598466-9 (Version None)
Quarter: 2012Q3

REPORT INFORMATION
  Report Type: 
  Country: None (occurrence: None)
  Receive Date: 20120816
  Receipt Date: 20120809
  Transmission Date: 20120928
  Serious: Yes (Hospitalization)
  Sender: FDA-Public Use
  Company Number: US-SANOFI-AVENTIS-2012SA025292

PATIENT
  Sex: Female

DRUGS (6)
  1. CISPLATIN [Suspect]
     Route: 065
     Dates: start: 20120503
  2. DOCETAXEL [Suspect]
     Indication: METASTATIC SQUAMOUS CELL CARCINOMA
     Route: 065
     Dates: start: 20120315
  3. DOCETAXEL [Suspect]
     Route: 065
     Dates: start: 20120503
  4. ERLOTINIB HYDROCHLORIDE [Suspect]
     Route: 065
     Dates: start: 20120501
  5. CISPLATIN [Suspect]
     Indication: METASTATIC SQUAMOUS CELL CARCINOMA
     Route: 065
     Dates: start: 20120315
  6. ERLOTINIB HYDROCHLORIDE [Suspect]
     Indication: METASTATIC SQUAMOUS CELL CARCINOMA
     Route: 065
     Dates: start: 20120222

REACTIONS (7)
  - GASTRIC HAEMORRHAGE [None]
  - GASTRIC ULCER [None]
  - DEHYDRATION [None]
  - NAUSEA [None]
  - POSTOPERATIVE WOUND INFECTION [None]
  - VOMITING [None]
  - SEPSIS [None]
